FAERS Safety Report 18495304 (Version 1)
Quarter: 2020Q4

REPORT INFORMATION
  Report Type: Spontaneous
  Country: US (occurrence: US)
  Receive Date: 20201111
  Receipt Date: 20201111
  Transmission Date: 20210114
  Serious: Yes (Other)
  Sender: FDA-Public Use
  Company Number: None

PATIENT
  Age: 82 Year
  Sex: Female
  Weight: 58.05 kg

DRUGS (9)
  1. IBRANCE [Suspect]
     Active Substance: PALBOCICLIB
     Indication: BREAST CANCER METASTATIC
     Route: 048
  2. FASLODEX [Suspect]
     Active Substance: FULVESTRANT
  3. LOOP RECORDER [Concomitant]
  4. VITAMIN D [Concomitant]
     Active Substance: VITAMIN D NOS
  5. BIOTIN [Concomitant]
     Active Substance: BIOTIN
  6. METOPROLOL. [Concomitant]
     Active Substance: METOPROLOL
  7. AMIODARONE [Concomitant]
     Active Substance: AMIODARONE
  8. CALCIUM [Concomitant]
     Active Substance: CALCIUM
  9. VITAMIN B12 [Concomitant]
     Active Substance: CYANOCOBALAMIN

REACTIONS (3)
  - Haematoma [None]
  - Alopecia [None]
  - Product substitution [None]

NARRATIVE: CASE EVENT DATE: 20200914
